FAERS Safety Report 17648511 (Version 2)
Quarter: 2020Q2

REPORT INFORMATION
  Report Type: Spontaneous
  Country: US (occurrence: US)
  Receive Date: 20200409
  Receipt Date: 20200422
  Transmission Date: 20200713
  Serious: Yes (Hospitalization)
  Sender: FDA-Public Use
  Company Number: US-TEVA-2020-US-1218181

PATIENT
  Age: 59 Year
  Sex: Male

DRUGS (2)
  1. CITALOPRAM [Suspect]
     Active Substance: CITALOPRAM HYDROBROMIDE
     Indication: DEPRESSIVE SYMPTOM
     Dosage: 20 MILLIGRAM DAILY;
     Route: 065
  2. LEVODOPA/CARBIDOPA [Suspect]
     Active Substance: CARBIDOPA\LEVODOPA
     Indication: PARKINSON^S DISEASE
     Dosage: 25/100 MG; 4 TIMES DAILY
     Route: 065

REACTIONS (8)
  - Delusion [Recovered/Resolved]
  - Impulsive behaviour [Recovered/Resolved]
  - Abnormal behaviour [Recovered/Resolved]
  - Hallucination [Recovered/Resolved]
  - Drug ineffective [Unknown]
  - Psychotic disorder [Recovered/Resolved]
  - Personality change [Recovered/Resolved]
  - Hypersexuality [Recovered/Resolved]
